FAERS Safety Report 8637749 (Version 2)
Quarter: 2013Q1

REPORT INFORMATION
  Report Type: Spontaneous
  Country: US (occurrence: US)
  Receive Date: 20120627
  Receipt Date: 20130118
  Transmission Date: 20140127
  Serious: Yes (Hospitalization)
  Sender: FDA-Public Use
  Company Number: US-BAYER-2012-062297

PATIENT
  Age: 42 Year
  Sex: Female
  Weight: 54.42 kg

DRUGS (20)
  1. YASMIN [Suspect]
     Indication: CONTRACEPTION
     Dosage: UNK
     Dates: start: 200303, end: 2008
  2. YASMIN [Suspect]
     Indication: PREMENSTRUAL SYNDROME
     Dosage: UNK
     Dates: start: 2006, end: 2008
  3. OCELLA [Suspect]
     Indication: CONTRACEPTION
     Dosage: UNK
     Dates: start: 200809, end: 20090818
  4. OCELLA [Suspect]
     Indication: PREMENSTRUAL SYNDROME
  5. NORFLEX [Concomitant]
  6. KLONOPIN [Concomitant]
  7. EFFEXOR XR [Concomitant]
     Indication: DEPRESSION
     Dosage: 150 MG, UNK
     Dates: start: 2005, end: 2011
  8. IBUPROFEN [Concomitant]
     Indication: PAIN
     Dosage: 200 MG, 6 TIMES A DAY PRN
     Dates: start: 20090818
  9. AZITHROMYCIN [Concomitant]
     Dosage: UNK
     Dates: start: 200806
  10. MUPIROCIN [Concomitant]
     Dosage: TID, 7 DAYS
  11. CLONAZEPAM [Concomitant]
     Indication: ANXIETY
     Dosage: 0.05 MG, PRN, DAILY
     Dates: start: 200802, end: 201001
  12. DIFLUCAN [Concomitant]
     Dosage: 150 MG, WEEKLY
     Dates: start: 20090520
  13. ABREVA [Concomitant]
     Dosage: APPLY 5 [TIMES] DAY
     Dates: start: 20090520
  14. AMRIX [Concomitant]
     Dosage: 15 MG, UNK
     Dates: start: 20090520
  15. FLUTICASONE [Concomitant]
     Dosage: UNK
     Route: 045
     Dates: start: 20090520
  16. METRONIDAZOLE [Concomitant]
     Dosage: 1 APPLICATION DAILY FOR 5 DAYS
  17. CIPROFLOXACIN [Concomitant]
     Dosage: 250 MG, UNK
  18. ABILIFY [Concomitant]
     Dosage: 15 MG, UNK
  19. OXYCODONE/APAP [Concomitant]
     Dosage: 5/325 MG Q 6 HOURS, 7 DAYS
  20. PRISTIQ [Concomitant]
     Dosage: 50 MG, DAILY
     Dates: start: 20090818

REACTIONS (8)
  - Thrombosis [None]
  - Peripheral artery thrombosis [None]
  - Injury [None]
  - Pain [None]
  - Emotional distress [None]
  - General physical health deterioration [None]
  - Anxiety [None]
  - Pain in extremity [None]
